FAERS Safety Report 8524302-2 (Version None)
Quarter: 2012Q3

REPORT INFORMATION
  Report Type: 
  Country: None (occurrence: None)
  Receive Date: 20120716
  Receipt Date: 20120716
  Transmission Date: 20120928
  Serious: Yes (Other)
  Sender: FDA-Public Use
  Company Number: None

PATIENT
  Age: 80 Year
  Sex: Male

DRUGS (1)
  1. FORTEO [Suspect]
     Indication: SENILE OSTEOPOROSIS
     Dosage: 20MCG DAILY SQ
     Route: 058
     Dates: start: 20120327, end: 20120711

REACTIONS (1)
  - DYSPNOEA [None]
